FAERS Safety Report 4357206-X (Version None)
Quarter: 2004Q2

REPORT INFORMATION
  Report Type: 
  Country: None (occurrence: None)
  Receive Date: 20040512
  Receipt Date: 20040512
  Transmission Date: 20050107
  Serious: Yes (Death)
  Sender: FDA-Public Use
  Company Number: None

PATIENT
  Age: 32 Year
  Sex: Male
  Weight: 81.6475 kg

DRUGS (3)
  1. LEXAPRO [Suspect]
     Indication: DEPRESSION
     Dosage: 1 DAILY ORAL
     Route: 048
     Dates: start: 20040324, end: 20040405
  2. LEXAPRO [Suspect]
     Indication: PAIN
     Dosage: 1 DAILY ORAL
     Route: 048
     Dates: start: 20040324, end: 20040405
  3. FLEXERIL [Concomitant]

REACTIONS (2)
  - COMPLETED SUICIDE [None]
  - PAIN EXACERBATED [None]
